FAERS Safety Report 15983362 (Version 2)
Quarter: 2019Q2

REPORT INFORMATION
  Report Type: Spontaneous
  Country: CH (occurrence: CH)
  Receive Date: 20190220
  Receipt Date: 20190422
  Transmission Date: 20190711
  Serious: Yes (Hospitalization, Other)
  Sender: FDA-Public Use
  Company Number: CH-SA-2019SA042543

PATIENT
  Age: 80 Year
  Sex: Male

DRUGS (27)
  1. NIFEDIPINE. [Suspect]
     Active Substance: NIFEDIPINE
     Indication: PRODUCT USED FOR UNKNOWN INDICATION
     Dosage: 60 MG, QD
     Route: 048
     Dates: start: 20190102, end: 20190115
  2. LAMOTRIGINE. [Suspect]
     Active Substance: LAMOTRIGINE
     Dosage: 50 MG, QD
     Route: 048
     Dates: start: 20190206
  3. NEPHROTRANS [Concomitant]
     Active Substance: SODIUM BICARBONATE
     Dosage: UNK, UNK
     Route: 065
     Dates: start: 20181224
  4. LITHIOFOR [Concomitant]
     Active Substance: LITHIUM SULFATE
     Dosage: UNK
     Route: 065
     Dates: start: 20190118
  5. CIRCADIN [Concomitant]
     Active Substance: MELATONIN
     Dosage: UNK, PRN
     Route: 065
     Dates: start: 20181224, end: 20190115
  6. LUVIT D3 [Concomitant]
     Active Substance: CHOLECALCIFEROL
     Dosage: UNK
     Route: 065
     Dates: start: 20181224
  7. G-CSF [Concomitant]
     Active Substance: GRANULOCYTE COLONY-STIMULATING FACTOR NOS
     Dosage: UNK
     Route: 065
     Dates: start: 20190115, end: 20190115
  8. APROVEL [Suspect]
     Active Substance: IRBESARTAN
     Indication: PRODUCT USED FOR UNKNOWN INDICATION
     Dosage: 150 MG, QD
     Route: 048
     Dates: start: 20190102, end: 20190114
  9. ATORVASTATINE [ATORVASTATIN CALCIUM] [Concomitant]
     Dosage: UNK UNK, UNK
     Route: 065
  10. CLOPIDOGREL BISULFATE. [Suspect]
     Active Substance: CLOPIDOGREL BISULFATE
     Dosage: 75 MG, QD, LAST DOE OF 15-JAN-2019 00:00
     Route: 048
  11. AMOXICILLIN TRIHYDRATE/POTASSIUM CLAVULANATE [Suspect]
     Active Substance: AMOXICILLIN\CLAVULANATE POTASSIUM
     Dosage: 1.2 G, QOD
     Route: 042
     Dates: start: 20181213, end: 20181218
  12. DUODART [Concomitant]
     Active Substance: DUTASTERIDE\TAMSULOSIN
     Dosage: UNK UNK, UNK
     Route: 065
     Dates: start: 20181219, end: 20190113
  13. LUVIT D3 [Concomitant]
     Active Substance: CHOLECALCIFEROL
     Dosage: UNK
     Route: 065
     Dates: start: 20181231
  14. SULFAMETHOXAZOLE/TRIMETHOPRIM [Suspect]
     Active Substance: SULFAMETHOXAZOLE\TRIMETHOPRIM
     Indication: PRODUCT USED FOR UNKNOWN INDICATION
     Dosage: 160 MG, QOD (EVERY 2 DAYS)
     Route: 048
     Dates: start: 20181219, end: 20181221
  15. CLARITHROMYCIN. [Suspect]
     Active Substance: CLARITHROMYCIN
     Indication: PRODUCT USED FOR UNKNOWN INDICATION
     Dosage: 500 MG, QOD (EVERY 2 DAYS)
     Route: 048
     Dates: start: 20181213, end: 20181218
  16. G-CSF [Concomitant]
     Active Substance: GRANULOCYTE COLONY-STIMULATING FACTOR NOS
     Dosage: UNK, TOTAL
     Route: 065
     Dates: start: 20181227, end: 20190102
  17. SULFAMETHOXAZOLE/TRIMETHOPRIM [Suspect]
     Active Substance: SULFAMETHOXAZOLE\TRIMETHOPRIM
     Dosage: 80 MG, QOD (EVERY 2 DAYS)
     Route: 048
     Dates: start: 20181221, end: 20181226
  18. ARIPIPRAZOLE. [Suspect]
     Active Substance: ARIPIPRAZOLE
     Dosage: 5 MG, QD
     Route: 048
     Dates: start: 20190122
  19. MOVICOL [Concomitant]
     Active Substance: POLYETHYLENE GLYCOL 3350\POTASSIUM CHLORIDE\SODIUM BICARBONATE\SODIUM CHLORIDE
     Dosage: UNK, UNK
     Route: 065
     Dates: start: 20181213
  20. FILGRASTIM [Concomitant]
     Active Substance: FILGRASTIM
     Dosage: UNK, UNK
     Route: 065
     Dates: start: 20181227, end: 20190115
  21. ARANESP [Concomitant]
     Active Substance: DARBEPOETIN ALFA
     Dosage: UNK UNK, UNK
     Route: 065
     Dates: start: 20181231
  22. LITHIOFOR [Concomitant]
     Active Substance: LITHIUM SULFATE
     Dosage: UNK, UNK LAST ADMINISTRATION 13-DEC-2018
     Route: 065
  23. G-CSF [Concomitant]
     Active Substance: GRANULOCYTE COLONY-STIMULATING FACTOR NOS
     Dosage: UNK, UNK
     Route: 065
     Dates: start: 20190108, end: 20190108
  24. PARACETAMOL [Suspect]
     Active Substance: ACETAMINOPHEN
     Indication: PRODUCT USED FOR UNKNOWN INDICATION
     Dosage: 1 G, Q4D
     Route: 048
     Dates: start: 20181213, end: 20190119
  25. ACIDUM FOLICUM [Concomitant]
     Active Substance: FOLIC ACID
     Dosage: UNK UNK, UNK
     Route: 065
     Dates: start: 20181227, end: 20190127
  26. NEXIUM MUPS [ESOMEPRAZOLE MAGNESIUM] [Concomitant]
     Active Substance: ESOMEPRAZOLE MAGNESIUM
     Dosage: UNK
     Route: 065
     Dates: start: 20181226
  27. MADOPAR [Concomitant]
     Active Substance: BENSERAZIDE HYDROCHLORIDE\LEVODOPA
     Dosage: UNK, UNK
     Route: 065
     Dates: start: 20190109, end: 20190118

REACTIONS (6)
  - Loss of consciousness [Recovered/Resolved]
  - Neutropenia [Not Recovered/Not Resolved]
  - Agranulocytosis [Not Recovered/Not Resolved]
  - Thrombocytopenia [Not Recovered/Not Resolved]
  - Hypotension [Recovered/Resolved]
  - Malaise [Recovered/Resolved]

NARRATIVE: CASE EVENT DATE: 20181222
